FAERS Safety Report 10881618 (Version 1)
Quarter: 2015Q1

REPORT INFORMATION
  Report Type: Spontaneous
  Country: DE (occurrence: DE)
  Receive Date: 20150303
  Receipt Date: 20150303
  Transmission Date: 20150721
  Serious: Yes (Other)
  Sender: FDA-Public Use
  Company Number: DE-BAYER-2015-030349

PATIENT
  Age: 33 Year
  Sex: Female
  Weight: 62 kg

DRUGS (2)
  1. MIRENA [Suspect]
     Active Substance: LEVONORGESTREL
     Dosage: 20 MCG/24HR, CONT
     Route: 015
     Dates: start: 2010, end: 20140112
  2. MIRENA [Suspect]
     Active Substance: LEVONORGESTREL
     Dosage: 20 MCG/24HR, CONT
     Route: 015
     Dates: start: 20060124, end: 2010

REACTIONS (13)
  - Diarrhoea [Recovered/Resolved]
  - Hyperhidrosis [Recovering/Resolving]
  - Panic attack [Recovering/Resolving]
  - Aggression [Recovering/Resolving]
  - Decreased appetite [Recovered/Resolved]
  - Cystitis noninfective [Recovering/Resolving]
  - Immune system disorder [Recovering/Resolving]
  - Intracranial aneurysm [Unknown]
  - Sleep disorder [Recovering/Resolving]
  - Mood swings [Recovering/Resolving]
  - Pigmentation disorder [Recovering/Resolving]
  - Apathy [Recovering/Resolving]
  - Neck pain [Recovering/Resolving]

NARRATIVE: CASE EVENT DATE: 2010
